FAERS Safety Report 19808292 (Version 2)
Quarter: 2021Q3

REPORT INFORMATION
  Report Type: Spontaneous
  Country: NL (occurrence: NL)
  Receive Date: 20210909
  Receipt Date: 20210924
  Transmission Date: 20211014
  Serious: Yes (Life-Threatening, Hospitalization)
  Sender: FDA-Public Use
  Company Number: NL-TEVA-2021-NL-1950135

PATIENT
  Age: 32 Year
  Sex: Female
  Weight: 80 kg

DRUGS (3)
  1. OXYCODON CAPSULE / BRAND NAME NOT SPECIFIED [Suspect]
     Active Substance: OXYCODONE
     Indication: POST PROCEDURAL COMPLICATION
     Dosage: 5 MG (MILLIGRAM) , THERAPY START DATE AND END DATE : ASKU
  2. OXYCODON CAPSULE / BRAND NAME NOT SPECIFIED [Interacting]
     Active Substance: OXYCODONE
     Indication: POST PROCEDURAL COMPLICATION
     Dosage: 10 MG (MILLIGRAM) , THERAPY START DATE AND END DATE : ASKU
  3. LISDEXAMFETAMINE CAPSULE 50MG / ELVANSE CAPSULE 50MG [Concomitant]
     Dosage: 50 MG (MILLIGRAM) , THERAPY START DATE AND END DATE : ASKU

REACTIONS (6)
  - Injection site pain [Recovered/Resolved]
  - Injection site warmth [Recovered/Resolved]
  - Amenorrhoea [Not Recovered/Not Resolved]
  - Headache [Recovered/Resolved]
  - Drug interaction [Recovering/Resolving]
  - Injection site inflammation [Recovered/Resolved]

NARRATIVE: CASE EVENT DATE: 20210704
